FAERS Safety Report 19253086 (Version 1)
Quarter: 2021Q2

REPORT INFORMATION
  Report Type: Report from Study
  Country: CA (occurrence: CA)
  Receive Date: 20210513
  Receipt Date: 20210513
  Transmission Date: 20210717
  Serious: Yes (Other)
  Sender: FDA-Public Use
  Company Number: CA-JNJFOC-20210420102

PATIENT
  Age: 53 Year
  Sex: Female
  Weight: 73.1 kg

DRUGS (2)
  1. REMICADE [Suspect]
     Active Substance: INFLIXIMAB
     Indication: CROHN^S DISEASE
     Dosage: EXPIRY DATE: 30?SEP?2021, RECENT DOSE RECEIVED ON 07?MAY?2021
     Route: 042
  2. GRAVOL [Concomitant]
     Active Substance: DIMENHYDRINATE
     Indication: PRODUCT USED FOR UNKNOWN INDICATION
     Route: 065

REACTIONS (7)
  - Tooth repair [Unknown]
  - Infusion related reaction [Recovered/Resolved]
  - Tooth abscess [Recovered/Resolved]
  - Retching [Recovered/Resolved]
  - Tooth fracture [Unknown]
  - Nausea [Recovered/Resolved]
  - Procedural pain [Unknown]

NARRATIVE: CASE EVENT DATE: 202104
